FAERS Safety Report 6468882-X (Version None)
Quarter: 2009Q4

REPORT INFORMATION
  Report Type: 
  Country: None (occurrence: None)
  Receive Date: 20091203
  Receipt Date: 20071113
  Transmission Date: 20100525
  Serious: Yes (Other)
  Sender: FDA-Public Use
  Company Number: US-ELI_LILLY_AND_COMPANY-USA0511112550

PATIENT
  Sex: Male

DRUGS (2)
  1. HUMALOG MIX 75/25 [Suspect]
     Dosage: UNK, UNKNOWN
     Route: 058
     Dates: start: 20030101
  2. HUMALOG [Suspect]

REACTIONS (14)
  - CONVULSION [None]
  - DIZZINESS [None]
  - FALL [None]
  - FEELING COLD [None]
  - FEELING HOT [None]
  - HYPERHIDROSIS [None]
  - HYPOGLYCAEMIA [None]
  - INCOHERENT [None]
  - MALAISE [None]
  - MEDICATION ERROR [None]
  - PAIN [None]
  - RENAL DISORDER [None]
  - TREMOR [None]
  - VISION BLURRED [None]
